FAERS Safety Report 4401010-0 (Version None)
Quarter: 2004Q3

REPORT INFORMATION
  Report Type: 
  Country: None (occurrence: None)
  Receive Date: 20040907
  Receipt Date: 20030918
  Transmission Date: 20050211
  Serious: No
  Sender: FDA-Public Use
  Company Number: US-BRISTOL-MYERS SQUIBB COMPANY-12387049

PATIENT
  Sex: Female

DRUGS (10)
  1. WARFARIN SODIUM [Suspect]
     Dates: start: 20030701
  2. ARANESP [Interacting]
     Indication: RENAL FAILURE CHRONIC
     Dosage: ORIGINAL DOSE 50 MCG/MO.  DOSE AT EVENT 50 MCG X 3/WK; REPORTED AS INCR. TO 50 MCG Q 3 WEEKS
     Route: 058
     Dates: start: 20020501
  3. METHYLPREDNISOLONE [Concomitant]
  4. ENALAPRIL MALEATE [Concomitant]
  5. MINOXIDIL [Concomitant]
  6. METOPROLOL [Concomitant]
  7. BUMETANIDE [Concomitant]
  8. AZATHIOPRINE [Concomitant]
  9. PHENOBARBITAL TAB [Concomitant]
  10. SODIUM POLYSTYRENE SULFONATE [Concomitant]

REACTIONS (2)
  - DRUG INTERACTION [None]
  - INTERNATIONAL NORMALISED RATIO DECREASED [None]
